FAERS Safety Report 8056564-2 (Version None)
Quarter: 2012Q1

REPORT INFORMATION
  Report Type: 
  Country: None (occurrence: None)
  Receive Date: 20120119
  Receipt Date: 20120116
  Transmission Date: 20120608
  Serious: Yes (Death)
  Sender: FDA-Public Use
  Company Number: JP-EISAI INC-E2090-01951-SPO-JP

PATIENT
  Age: 87 Year
  Sex: Male

DRUGS (1)
  1. ZONISAMIDE [Suspect]
     Route: 048
     Dates: start: 20111203, end: 20120106

REACTIONS (1)
  - AGRANULOCYTOSIS [None]
